FAERS Safety Report 8068027-9 (Version None)
Quarter: 2012Q1

REPORT INFORMATION
  Report Type: 
  Country: None (occurrence: None)
  Receive Date: 20120124
  Receipt Date: 20110913
  Transmission Date: 20120608
  Serious: No
  Sender: FDA-Public Use
  Company Number: US-AMGEN-USASP2011046881

PATIENT
  Sex: Female

DRUGS (7)
  1. TOCOPHEROL CONCENTRATE CAP [Concomitant]
  2. GARLIC                             /01570501/ [Concomitant]
  3. AMITRIPTYLINE HCL [Concomitant]
  4. ASPIRIN [Concomitant]
  5. ASPERCREME [Concomitant]
  6. PROLIA [Suspect]
     Indication: OSTEOPOROSIS POSTMENOPAUSAL
     Dosage: 60 MG, Q6MO
     Dates: start: 20110811
  7. SONATA                             /00061001/ [Concomitant]

REACTIONS (10)
  - EAR PAIN [None]
  - MYALGIA [None]
  - PAIN IN EXTREMITY [None]
  - BONE PAIN [None]
  - INSOMNIA [None]
  - MUSCLE SPASMS [None]
  - OSTEITIS [None]
  - PAIN IN JAW [None]
  - OROPHARYNGEAL PAIN [None]
  - RASH MACULAR [None]
